FAERS Safety Report 8401533-3 (Version None)
Quarter: 2012Q2

REPORT INFORMATION
  Report Type: 
  Country: None (occurrence: None)
  Receive Date: 20120601
  Receipt Date: 20120523
  Transmission Date: 20120825
  Serious: Yes (Other)
  Sender: FDA-Public Use
  Company Number: JP-JNJFOC-20110700685

PATIENT
  Sex: Male
  Weight: 68 kg

DRUGS (10)
  1. FLOMOX [Concomitant]
     Route: 048
     Dates: start: 20110531, end: 20110602
  2. PREDNISOLONE [Suspect]
     Indication: PROSTATE CANCER
     Route: 048
     Dates: start: 20110602, end: 20110616
  3. DEPAS [Concomitant]
     Indication: ILL-DEFINED DISORDER
     Route: 048
  4. DIOVAN [Concomitant]
     Indication: HYPERTENSION
     Route: 048
  5. NORVASC [Concomitant]
     Indication: PRODUCT USED FOR UNKNOWN INDICATION
     Route: 048
  6. ZOLADEX [Concomitant]
     Indication: PROSTATE CANCER
     Route: 058
  7. ABIRATERONE ACETATE [Suspect]
     Route: 048
  8. ABIRATERONE ACETATE [Suspect]
     Indication: PROSTATE CANCER
     Route: 048
     Dates: start: 20110526, end: 20110616
  9. FLOMOX [Concomitant]
     Indication: TOOTH EXTRACTION
     Route: 048
     Dates: start: 20110606, end: 20110608
  10. ZOMETA [Concomitant]
     Indication: ILL-DEFINED DISORDER
     Route: 041

REACTIONS (2)
  - ALANINE AMINOTRANSFERASE INCREASED [None]
  - GAMMA-GLUTAMYLTRANSFERASE INCREASED [None]
